FAERS Safety Report 19418806 (Version 3)
Quarter: 2022Q3

REPORT INFORMATION
  Report Type: Spontaneous
  Country: CH (occurrence: CH)
  Receive Date: 20210615
  Receipt Date: 20220824
  Transmission Date: 20221026
  Serious: Yes (Hospitalization, Other)
  Sender: FDA-Public Use
  Company Number: None

PATIENT
  Sex: Female

DRUGS (25)
  1. TORSEMIDE [Suspect]
     Active Substance: TORSEMIDE
     Indication: Product used for unknown indication
     Dosage: 10 MILLIGRAM, QD
     Route: 048
     Dates: start: 20210118, end: 20210219
  2. TORSEMIDE [Suspect]
     Active Substance: TORSEMIDE
     Dosage: 10 MILLIGRAM, QD
     Route: 048
     Dates: start: 20210506, end: 20210520
  3. TORSEMIDE [Suspect]
     Active Substance: TORSEMIDE
     Dosage: 10 MILLIGRAM, QD
     Route: 048
     Dates: start: 20210612, end: 20210727
  4. ENOXAPARIN SODIUM [Suspect]
     Active Substance: ENOXAPARIN SODIUM
     Indication: Product used for unknown indication
     Dosage: 40 MILLIGRAM, QD
     Route: 058
     Dates: start: 20210110, end: 20210219
  5. ENOXAPARIN SODIUM [Suspect]
     Active Substance: ENOXAPARIN SODIUM
     Dosage: 40 MILLIGRAM, QD
     Route: 058
     Dates: start: 20210507
  6. MOXIFLOXACIN [Suspect]
     Active Substance: MOXIFLOXACIN
     Indication: Product used for unknown indication
     Dosage: 400 MILLIGRAM, QD
     Route: 065
     Dates: start: 20210111, end: 20210118
  7. ASPIRIN [Concomitant]
     Active Substance: ASPIRIN
     Dosage: 100 MILLIGRAM, QD
     Route: 048
     Dates: end: 20210510
  8. AMLODIPINE BESYLATE [Concomitant]
     Active Substance: AMLODIPINE BESYLATE
     Dosage: 10 MILLIGRAM, QD
     Route: 048
     Dates: end: 20210513
  9. CYMBALTA [Concomitant]
     Active Substance: DULOXETINE HYDROCHLORIDE
     Dosage: 30 MILLIGRAM, QD
     Route: 048
     Dates: start: 202009, end: 20210110
  10. CYMBALTA [Concomitant]
     Active Substance: DULOXETINE HYDROCHLORIDE
     Dosage: 15 MILLIGRAM, QD
     Route: 048
     Dates: start: 20210219, end: 20210509
  11. REMERON [Concomitant]
     Active Substance: MIRTAZAPINE
     Dosage: 7.5 MILLIGRAM, QD
     Route: 048
     Dates: start: 20210211, end: 20210219
  12. REMERON [Concomitant]
     Active Substance: MIRTAZAPINE
     Dosage: 7.5 MILLIGRAM, QD
     Route: 048
     Dates: start: 20210510, end: 20210511
  13. OXAZEPAM [Concomitant]
     Active Substance: OXAZEPAM
     Dosage: 7.5 MILLIGRAM, QD
     Route: 048
     Dates: start: 20210510, end: 20210510
  14. OXAZEPAM [Concomitant]
     Active Substance: OXAZEPAM
     Dosage: 7.5 MILLIGRAM, QD
     Route: 048
     Dates: start: 20210512, end: 20210512
  15. VESICARE [Concomitant]
     Active Substance: SOLIFENACIN SUCCINATE
     Dosage: 5 MILLIGRAM, QD
     Route: 048
     Dates: end: 20210512
  16. BROMAZEPAM [Concomitant]
     Active Substance: BROMAZEPAM
     Dosage: 1.5 MILLIGRAM, QD
     Route: 048
     Dates: start: 20210110, end: 20210113
  17. BROMAZEPAM [Concomitant]
     Active Substance: BROMAZEPAM
     Dosage: 1.5 MILLIGRAM, PRN (AS NECESSARY)
     Route: 065
  18. SODIUM PICOSULFATE [Concomitant]
     Active Substance: SODIUM PICOSULFATE
     Dosage: 10 MILLIGRAM, QD
     Route: 048
     Dates: start: 20210115, end: 20210219
  19. BISOPROLOL FUMARATE [Concomitant]
     Active Substance: BISOPROLOL FUMARATE
     Dosage: 10 MILLIGRAM, QD
     Route: 048
     Dates: start: 20210220
  20. BISOPROLOL FUMARATE [Concomitant]
     Active Substance: BISOPROLOL FUMARATE
     Dosage: 10 MILLIGRAM, QD
     Route: 048
  21. Bioflorin [Concomitant]
     Dosage: 1 DOSAGE FORM, TID
     Route: 065
  22. MELATONIN [Concomitant]
     Active Substance: MELATONIN
     Dosage: 2 MILLIGRAM, QD
     Route: 065
     Dates: start: 20210514
  23. ENALAPRIL [Concomitant]
     Active Substance: ENALAPRIL
     Dosage: 10 MILLIGRAM, QD
     Route: 065
  24. NITRODERM [Concomitant]
     Active Substance: NITROGLYCERIN
     Dosage: 10 MILLIGRAM, QD
     Route: 065
  25. PROTAGENT SE [Concomitant]
     Dosage: 1 GTT DROPS, QID
     Route: 031

REACTIONS (7)
  - Eosinophilia [Recovered/Resolved]
  - Fall [Unknown]
  - Dehydration [Unknown]
  - Pemphigoid [Unknown]
  - Eczema [Unknown]
  - Infection parasitic [Unknown]
  - Pruritus [Recovered/Resolved]
